FAERS Safety Report 9200257 (Version 2)
Quarter: 2013Q3

REPORT INFORMATION
  Report Type: Spontaneous
  Country: US (occurrence: US)
  Receive Date: 20130329
  Receipt Date: 20130726
  Transmission Date: 20140515
  Serious: Yes (Hospitalization, Disabling, Other)
  Sender: FDA-Public Use
  Company Number: US-009507513-2011SP017861

PATIENT
  Sex: Female
  Weight: 70.3 kg

DRUGS (2)
  1. NUVARING [Suspect]
     Indication: CONTRACEPTION
     Dosage: UNK
     Dates: start: 200411, end: 200502
  2. NUVARING [Suspect]
     Indication: MENORRHAGIA

REACTIONS (2)
  - Major depression [Not Recovered/Not Resolved]
  - Cerebrovascular accident [Not Recovered/Not Resolved]
